FAERS Safety Report 6356416-X (Version None)
Quarter: 2009Q3

REPORT INFORMATION
  Report Type: 
  Country: None (occurrence: None)
  Receive Date: 20090915
  Receipt Date: 20090909
  Transmission Date: 20100115
  Serious: Yes (Other)
  Sender: FDA-Public Use
  Company Number: DE-ELI_LILLY_AND_COMPANY-DE200908006176

PATIENT
  Sex: Female

DRUGS (5)
  1. BYETTA [Suspect]
     Dosage: 5 UG, 2/D
     Route: 065
     Dates: start: 20090318
  2. THYRONAJOD [Concomitant]
     Dosage: UNK, UNKNOWN
     Route: 065
  3. SIMVA [Concomitant]
     Dosage: 20 MG, UNKNOWN
     Route: 065
  4. OPTOVIT [Concomitant]
     Dosage: 500 D/F, UNKNOWN
     Route: 065
  5. METFORMIN HCL [Concomitant]
     Dosage: 1000 D/F, 2/D
     Route: 065

REACTIONS (4)
  - ANAEMIA [None]
  - GASTROINTESTINAL CARCINOMA [None]
  - HAEMORRHAGE [None]
  - RED BLOOD CELL SEDIMENTATION RATE INCREASED [None]
